FAERS Safety Report 4585181-1 (Version None)
Quarter: 2005Q1

REPORT INFORMATION
  Report Type: 
  Country: None (occurrence: None)
  Receive Date: 20050217
  Receipt Date: 20050118
  Transmission Date: 20050727
  Serious: No
  Sender: FDA-Public Use
  Company Number: US-GLAXOSMITHKLINE-A0541100A

PATIENT
  Age: 42 Year
  Sex: Male

DRUGS (4)
  1. WELLBUTRIN XL [Suspect]
     Indication: DEPRESSION
     Dosage: 150MG PER DAY
     Route: 048
     Dates: start: 20050114
  2. GLUCOPHAGE [Concomitant]
  3. DYNACIRC [Concomitant]
  4. DIOVAN [Concomitant]

REACTIONS (1)
  - DYSGEUSIA [None]
